FAERS Safety Report 5942918-4 (Version None)
Quarter: 2008Q4

REPORT INFORMATION
  Report Type: 
  Country: None (occurrence: None)
  Receive Date: 20081106
  Receipt Date: 20081103
  Transmission Date: 20090506
  Serious: Yes (Hospitalization, Other)
  Sender: FDA-Public Use
  Company Number: US-BRISTOL-MYERS SQUIBB COMPANY-13929146

PATIENT
  Age: 55 Year
  Sex: Female

DRUGS (3)
  1. TAXOL [Suspect]
     Indication: BREAST CANCER
  2. NEURONTIN [Concomitant]
  3. DEPAKOTE [Concomitant]

REACTIONS (7)
  - AUTONOMIC NEUROPATHY [None]
  - COMA [None]
  - DRUG INEFFECTIVE [None]
  - FEBRILE NEUTROPENIA [None]
  - NEUROPATHY PERIPHERAL [None]
  - OPTIC NERVE DISORDER [None]
  - PNEUMONIA [None]
